FAERS Safety Report 5780581-6 (Version None)
Quarter: 2008Q2

REPORT INFORMATION
  Report Type: 
  Country: None (occurrence: None)
  Receive Date: 20080620
  Receipt Date: 20080611
  Transmission Date: 20081010
  Serious: Yes (Other)
  Sender: FDA-Public Use
  Company Number: US-ELI_LILLY_AND_COMPANY-US200806002489

PATIENT
  Sex: Female

DRUGS (1)
  1. HUMULIN 70/30 [Suspect]
     Dosage: UNK, UNK
     Dates: start: 20030101

REACTIONS (4)
  - CARDIAC DISORDER [None]
  - CATARACT [None]
  - CORONARY ARTERY STENOSIS [None]
  - VISUAL ACUITY REDUCED [None]
